FAERS Safety Report 8058148-9 (Version None)
Quarter: 2012Q1

REPORT INFORMATION
  Report Type: 
  Country: None (occurrence: None)
  Receive Date: 20120111
  Receipt Date: 20120105
  Transmission Date: 20120608
  Serious: Yes (Hospitalization)
  Sender: FDA-Public Use
  Company Number: 2011SP012082

PATIENT
  Age: 30 Year
  Sex: Female
  Weight: 63.5036 kg

DRUGS (6)
  1. MIDRIN [Concomitant]
  2. PROVENTIL [Concomitant]
  3. LYRICA [Concomitant]
  4. PERCOCET [Concomitant]
  5. NUVARING [Suspect]
     Indication: CONTRACEPTION
     Dates: start: 20050701, end: 20100301
  6. TRIAZOLAM [Concomitant]

REACTIONS (13)
  - ROAD TRAFFIC ACCIDENT [None]
  - PNEUMONIA [None]
  - SINUS DISORDER [None]
  - DEEP VEIN THROMBOSIS [None]
  - HEAD INJURY [None]
  - FRACTURE DISPLACEMENT [None]
  - AFFECTIVE DISORDER [None]
  - COMMINUTED FRACTURE [None]
  - HAEMORRHAGE [None]
  - JAW FRACTURE [None]
  - LACERATION [None]
  - CEREBRAL HAEMORRHAGE [None]
  - FACIAL BONES FRACTURE [None]
